FAERS Safety Report 4958180-5 (Version None)
Quarter: 2006Q1

REPORT INFORMATION
  Report Type: 
  Country: None (occurrence: None)
  Receive Date: 20060330
  Receipt Date: 20060124
  Transmission Date: 20060701
  Serious: Yes (Death, Hospitalization)
  Sender: FDA-Public Use
  Company Number: US-ROCHE-433644

PATIENT
  Age: 61 Year
  Sex: Female
  Weight: 44.5 kg

DRUGS (3)
  1. CAPECITABINE [Suspect]
     Dosage: MONDAY TO FRIDAY
     Route: 048
     Dates: start: 20051107, end: 20051129
  2. OXALIPLATIN [Suspect]
     Dosage: DOSE = 84MG
     Route: 042
     Dates: start: 20051107, end: 20051128
  3. IRINOTECAN [Suspect]
     Dosage: DOSE = 70MG
     Route: 042
     Dates: start: 20051107, end: 20051108

REACTIONS (5)
  - DEHYDRATION [None]
  - HAEMATEMESIS [None]
  - OESOPHAGEAL PERFORATION [None]
  - PNEUMOTHORAX [None]
  - SEPSIS [None]
